FAERS Safety Report 25536210 (Version 1)
Quarter: 2025Q3

REPORT INFORMATION
  Report Type: Report from Study
  Country: US (occurrence: US)
  Receive Date: 20250709
  Receipt Date: 20250709
  Transmission Date: 20251021
  Serious: No
  Sender: TG THERAPEUTICS
  Company Number: US-TG THERAPEUTICS INC.-TGT005121

PATIENT

DRUGS (8)
  1. UBLITUXIMAB [Suspect]
     Active Substance: UBLITUXIMAB
     Indication: Multiple sclerosis
     Route: 042
     Dates: start: 20250424, end: 20250424
  2. UBLITUXIMAB [Suspect]
     Active Substance: UBLITUXIMAB
     Route: 042
     Dates: start: 20250508, end: 20250508
  3. LIORESAL [Concomitant]
     Active Substance: BACLOFEN
     Indication: Muscle spasms
     Dosage: 10 MILLIGRAM, TID PRN
     Route: 048
  4. VITAMIN D3 [Concomitant]
     Active Substance: CHOLECALCIFEROL
     Indication: Product used for unknown indication
     Dosage: 50 MICROGRAM, QD
     Route: 048
  5. VALIUM [Concomitant]
     Active Substance: DIAZEPAM
     Indication: Product used for unknown indication
     Route: 048
  6. REVATIO [Concomitant]
     Active Substance: SILDENAFIL CITRATE
     Indication: Pulmonary hypertension
     Route: 048
  7. TESTOSTERONE [Concomitant]
     Active Substance: TESTOSTERONE
     Indication: Product used for unknown indication
     Route: 061
  8. NORCO [Concomitant]
     Active Substance: ACETAMINOPHEN\HYDROCODONE BITARTRATE
     Indication: Product used for unknown indication
     Dosage: 10-325 MILLIGRAM, Q6H PRN
     Route: 048

REACTIONS (7)
  - Asthenia [Recovering/Resolving]
  - Cough [Unknown]
  - Chills [Unknown]
  - Hyperhidrosis [Unknown]
  - Gait disturbance [Recovering/Resolving]
  - Hypersomnia [Recovering/Resolving]
  - Fatigue [Recovering/Resolving]

NARRATIVE: CASE EVENT DATE: 20250501
